FAERS Safety Report 9108527 (Version 1)
Quarter: 2013Q1

REPORT INFORMATION
  Report Type: Spontaneous
  Country: US (occurrence: US)
  Receive Date: 20130222
  Receipt Date: 20130222
  Transmission Date: 20140127
  Serious: No
  Sender: FDA-Public Use
  Company Number: US-BAYER-2013-019215

PATIENT
  Age: 81 Year
  Sex: Male
  Weight: 76.19 kg

DRUGS (2)
  1. BAYER ADVANCED ASPIRIN EXTRA STRENGTH [Suspect]
     Indication: ISCHAEMIC HEART DISEASE PROPHYLAXIS
     Dosage: 1 DF, QD
     Route: 048
     Dates: start: 201210, end: 20130202
  2. ALEVE CAPLET/TABLET,MIDOL EXTENDED RELIEF CAPLET [Suspect]
     Indication: BACK PAIN
     Dosage: 2 DF, QD WITH FOOD
     Route: 048
     Dates: end: 20130128

REACTIONS (3)
  - Foreign body [Recovered/Resolved]
  - Incorrect drug administration duration [None]
  - Drug ineffective [None]
